FAERS Safety Report 9437013 (Version 1)
Quarter: 2013Q3

REPORT INFORMATION
  Report Type: Spontaneous
  Country: SG (occurrence: SG)
  Receive Date: 20130802
  Receipt Date: 20130802
  Transmission Date: 20140515
  Serious: Yes (Death)
  Sender: FDA-Public Use
  Company Number: SG-BAYER-2013-090604

PATIENT
  Age: 71 Year
  Sex: Male

DRUGS (6)
  1. NEXAVAR TABLET 200 MG [Suspect]
     Indication: HEPATOCELLULAR CARCINOMA
     Dosage: DAILY DOSE 800 MG
     Route: 048
     Dates: start: 20130213, end: 20130625
  2. DESONIDE [Concomitant]
     Dosage: UNK
     Dates: start: 20130314, end: 20130625
  3. METFORMIN [Concomitant]
     Indication: DIABETES MELLITUS
     Dosage: UNK
     Dates: start: 19930101, end: 20130625
  4. GLIBENCLAMIDE [Concomitant]
     Indication: DIABETES MELLITUS
     Dosage: UNK
     Dates: start: 19930101, end: 20130625
  5. ENALAPRIL [Concomitant]
     Dosage: UNK
     Dates: start: 19930101, end: 20130625
  6. GENTEAL [Concomitant]
     Dosage: UNK
     Dates: start: 20130314, end: 20130625

REACTIONS (3)
  - Hepatocellular carcinoma [Fatal]
  - Abdominal distension [None]
  - Dyspnoea [None]
